FAERS Safety Report 5749497-5 (Version None)
Quarter: 2008Q2

REPORT INFORMATION
  Report Type: 
  Country: None (occurrence: None)
  Receive Date: 20080527
  Receipt Date: 20080522
  Transmission Date: 20081010
  Serious: Yes (Hospitalization)
  Sender: FDA-Public Use
  Company Number: B0520184A

PATIENT
  Age: 86 Year
  Sex: Female

DRUGS (8)
  1. ARIXTRA [Suspect]
     Indication: THROMBOSIS PROPHYLAXIS
     Dosage: 2.5MG PER DAY
     Route: 058
     Dates: start: 20080424, end: 20080428
  2. MICARDIS [Concomitant]
     Route: 048
  3. TORSEMIDE [Concomitant]
     Route: 048
  4. FLUITRAN [Concomitant]
     Route: 048
  5. SELBEX [Concomitant]
     Route: 048
  6. MERISLON [Concomitant]
     Route: 048
  7. UNKNOWN DRUG [Concomitant]
  8. VOLTAREN [Concomitant]
     Route: 065

REACTIONS (4)
  - GASTRIC ULCER PERFORATION [None]
  - HAEMATOMA [None]
  - HAEMORRHAGE [None]
  - IMPAIRED HEALING [None]
